FAERS Safety Report 19943111 (Version 1)
Quarter: 2021Q4

REPORT INFORMATION
  Report Type: Spontaneous
  Country: US (occurrence: US)
  Receive Date: 20211011
  Receipt Date: 20211011
  Transmission Date: 20220304
  Serious: Yes (Other)
  Sender: FDA-Public Use
  Company Number: None

PATIENT
  Age: 59 Year
  Sex: Female
  Weight: 130.5 kg

DRUGS (13)
  1. TRULICITY [Suspect]
     Active Substance: DULAGLUTIDE
     Indication: Type 2 diabetes mellitus
     Dosage: ?          QUANTITY:1 INJECTION(S);OTHER FREQUENCY:WEEKLY;OTHER ROUTE:INJECTION TO THE STOMACH REGIO
     Dates: start: 20191007, end: 20210816
  2. DEVICE [Concomitant]
     Active Substance: DEVICE
  3. TRESIBA [Concomitant]
     Active Substance: INSULIN DEGLUDEC
  4. NOVOLOG [Concomitant]
     Active Substance: INSULIN ASPART
  5. ATENOLOL [Concomitant]
     Active Substance: ATENOLOL
  6. HYDROCHLOROTHIAZIDE [Concomitant]
     Active Substance: HYDROCHLOROTHIAZIDE
  7. METFORMIN [Concomitant]
     Active Substance: METFORMIN HYDROCHLORIDE
  8. GLIMIEPIRIDE [Concomitant]
  9. CITALOPRAM [Concomitant]
     Active Substance: CITALOPRAM HYDROBROMIDE
  10. ROSUVASTATIN [Concomitant]
     Active Substance: ROSUVASTATIN
  11. WARFARIN [Concomitant]
     Active Substance: WARFARIN
  12. VITAMINS [Concomitant]
     Active Substance: VITAMINS
  13. PROBIOTICS NOS [Concomitant]
     Active Substance: PROBIOTICS NOS

REACTIONS (4)
  - Vitreous floaters [None]
  - Eye pain [None]
  - Blindness [None]
  - Vision blurred [None]

NARRATIVE: CASE EVENT DATE: 20210101
